FAERS Safety Report 8993092 (Version 2)
Quarter: 2013Q2

REPORT INFORMATION
  Report Type: Spontaneous
  Country: JP (occurrence: JP)
  Receive Date: 20130102
  Receipt Date: 20130403
  Transmission Date: 20140414
  Serious: Yes (Death)
  Sender: FDA-Public Use
  Company Number: JP-ROCHE-1175617

PATIENT
  Age: 83 Year
  Sex: Male

DRUGS (14)
  1. RITUXIMAB [Suspect]
     Indication: DIFFUSE LARGE B-CELL LYMPHOMA
     Route: 042
     Dates: start: 20121026
  2. RITUXIMAB [Suspect]
     Route: 042
     Dates: start: 20121122
  3. ENDOXAN [Suspect]
     Indication: DIFFUSE LARGE B-CELL LYMPHOMA
     Route: 042
  4. VINCRISTINE SULFATE [Concomitant]
     Indication: DIFFUSE LARGE B-CELL LYMPHOMA
     Route: 042
  5. DOXORUBICIN HYDROCHLORIDE [Concomitant]
     Indication: DIFFUSE LARGE B-CELL LYMPHOMA
     Route: 042
  6. PREDNISOLONE [Concomitant]
     Indication: DIFFUSE LARGE B-CELL LYMPHOMA
     Route: 042
  7. VASOLAN [Concomitant]
     Indication: ATRIAL FIBRILLATION
     Route: 048
  8. BAYASPIRIN [Concomitant]
     Indication: CEREBRAL INFARCTION
     Route: 048
  9. MAGLAX [Concomitant]
     Indication: CONSTIPATION
     Route: 048
  10. PARIET [Concomitant]
     Indication: GASTRITIS
     Route: 048
  11. CONIEL [Concomitant]
     Indication: HYPERTENSION
     Route: 048
  12. JANUVIA [Concomitant]
     Indication: DIABETES MELLITUS
     Route: 048
  13. EPADEL [Concomitant]
     Indication: HYPERLIPIDAEMIA
     Route: 048
  14. GLUFAST [Concomitant]
     Indication: DIABETES MELLITUS
     Route: 048

REACTIONS (1)
  - Interstitial lung disease [Fatal]
